FAERS Safety Report 12423622 (Version 1)
Quarter: 2016Q2

REPORT INFORMATION
  Report Type: Spontaneous
  Country: US (occurrence: US)
  Receive Date: 20160601
  Receipt Date: 20160601
  Transmission Date: 20160815
  Serious: No
  Sender: FDA-Public Use
  Company Number: US-NOVEN PHARMACEUTICALS, INC.-US2015000655

PATIENT
  Age: 9 Year
  Sex: Male

DRUGS (2)
  1. DAYTRANA [Suspect]
     Active Substance: METHYLPHENIDATE
     Indication: ATTENTION DEFICIT/HYPERACTIVITY DISORDER
     Dosage: 20 MG, UNKNOWN
     Route: 062
     Dates: start: 2014
  2. MAPROTILINE HCL [Concomitant]
     Indication: ANXIETY
     Dosage: 7.5 MG, QD AT BEDTIME

REACTIONS (5)
  - Drug prescribing error [Unknown]
  - Application site irritation [Not Recovered/Not Resolved]
  - Product quality issue [Unknown]
  - Disturbance in attention [Not Recovered/Not Resolved]
  - Application site pain [Not Recovered/Not Resolved]

NARRATIVE: CASE EVENT DATE: 20150728
